FAERS Safety Report 4452043-X (Version None)
Quarter: 2004Q3

REPORT INFORMATION
  Report Type: 
  Country: None (occurrence: None)
  Receive Date: 20040915
  Receipt Date: 20040915
  Transmission Date: 20050211
  Serious: Yes (Hospitalization)
  Sender: FDA-Public Use
  Company Number: None

PATIENT
  Age: 44 Year
  Sex: Female
  Weight: 42.2 kg

DRUGS (6)
  1. WARFARIN SODIUM [Suspect]
     Indication: PORTAL VEIN THROMBOSIS
     Dosage: 7.5 MG DAILY {6 MONTHS
  2. PEPCID [Concomitant]
  3. BUSPAR [Concomitant]
  4. INSULIN [Concomitant]
  5. CREON 10 [Concomitant]
  6. SENNA [Concomitant]

REACTIONS (5)
  - ABDOMINAL PAIN [None]
  - BLOOD URINE [None]
  - CONTUSION [None]
  - INTERNATIONAL NORMALISED RATIO INCREASED [None]
  - VAGINAL HAEMORRHAGE [None]
